FAERS Safety Report 25545161 (Version 1)
Quarter: 2025Q3

REPORT INFORMATION
  Report Type: Spontaneous
  Country: EU (occurrence: EU)
  Receive Date: 20250711
  Receipt Date: 20250711
  Transmission Date: 20251020
  Serious: Yes (Life-Threatening, Hospitalization)
  Sender: MYLAN
  Company Number: EU-DCGMA-25205308

PATIENT
  Age: 12 Year
  Sex: Female
  Weight: 38 kg

DRUGS (48)
  1. EVEROLIMUS [Suspect]
     Active Substance: EVEROLIMUS
     Indication: Renal transplant
     Dosage: UNK, BID (1-0-1)
     Dates: start: 202401
  2. EVEROLIMUS [Suspect]
     Active Substance: EVEROLIMUS
     Dosage: UNK, BID (1-0-1)
     Route: 048
     Dates: start: 202401
  3. EVEROLIMUS [Suspect]
     Active Substance: EVEROLIMUS
     Dosage: UNK, BID (1-0-1)
     Route: 048
     Dates: start: 202401
  4. EVEROLIMUS [Suspect]
     Active Substance: EVEROLIMUS
     Dosage: UNK, BID (1-0-1)
     Dates: start: 202401
  5. AZITHROMYCIN [Suspect]
     Active Substance: AZITHROMYCIN
     Indication: Mycoplasma infection
  6. AZITHROMYCIN [Suspect]
     Active Substance: AZITHROMYCIN
     Route: 048
  7. AZITHROMYCIN [Suspect]
     Active Substance: AZITHROMYCIN
     Route: 048
  8. AZITHROMYCIN [Suspect]
     Active Substance: AZITHROMYCIN
  9. TACROLIMUS [Suspect]
     Active Substance: TACROLIMUS
     Indication: Renal transplant
     Dosage: UNK UNK, BID (1-0-1)
     Dates: start: 202401
  10. TACROLIMUS [Suspect]
     Active Substance: TACROLIMUS
     Dosage: UNK UNK, BID (1-0-1)
     Route: 048
     Dates: start: 202401
  11. TACROLIMUS [Suspect]
     Active Substance: TACROLIMUS
     Dosage: UNK UNK, BID (1-0-1)
     Route: 048
     Dates: start: 202401
  12. TACROLIMUS [Suspect]
     Active Substance: TACROLIMUS
     Dosage: UNK UNK, BID (1-0-1)
     Dates: start: 202401
  13. SODIUM BICARBONATE [Concomitant]
     Active Substance: SODIUM BICARBONATE
     Indication: Chronic kidney disease
     Dosage: UNK UNK, BID (2-0-2)
     Dates: start: 202401
  14. SODIUM BICARBONATE [Concomitant]
     Active Substance: SODIUM BICARBONATE
     Dosage: UNK UNK, BID (2-0-2)
     Route: 048
     Dates: start: 202401
  15. SODIUM BICARBONATE [Concomitant]
     Active Substance: SODIUM BICARBONATE
     Dosage: UNK UNK, BID (2-0-2)
     Route: 048
     Dates: start: 202401
  16. SODIUM BICARBONATE [Concomitant]
     Active Substance: SODIUM BICARBONATE
     Dosage: UNK UNK, BID (2-0-2)
     Dates: start: 202401
  17. CHOLECALCIFEROL [Concomitant]
     Active Substance: CHOLECALCIFEROL
  18. CHOLECALCIFEROL [Concomitant]
     Active Substance: CHOLECALCIFEROL
     Route: 048
  19. CHOLECALCIFEROL [Concomitant]
     Active Substance: CHOLECALCIFEROL
     Route: 048
  20. CHOLECALCIFEROL [Concomitant]
     Active Substance: CHOLECALCIFEROL
  21. Spasmex [Concomitant]
  22. Spasmex [Concomitant]
     Route: 048
  23. Spasmex [Concomitant]
     Route: 048
  24. Spasmex [Concomitant]
  25. FERRO-SANOL DUODENAL [Concomitant]
     Active Substance: FERROUS GLYCINE SULFATE
  26. FERRO-SANOL DUODENAL [Concomitant]
     Active Substance: FERROUS GLYCINE SULFATE
     Route: 048
  27. FERRO-SANOL DUODENAL [Concomitant]
     Active Substance: FERROUS GLYCINE SULFATE
     Route: 048
  28. FERRO-SANOL DUODENAL [Concomitant]
     Active Substance: FERROUS GLYCINE SULFATE
  29. MAGNESIUM [Concomitant]
     Active Substance: MAGNESIUM
     Dosage: 160 MILLIGRAM, QD (40 MG 2-1-1)
     Dates: start: 202404
  30. MAGNESIUM [Concomitant]
     Active Substance: MAGNESIUM
     Dosage: 160 MILLIGRAM, QD (40 MG 2-1-1)
     Route: 048
     Dates: start: 202404
  31. MAGNESIUM [Concomitant]
     Active Substance: MAGNESIUM
     Dosage: 160 MILLIGRAM, QD (40 MG 2-1-1)
     Route: 048
     Dates: start: 202404
  32. MAGNESIUM [Concomitant]
     Active Substance: MAGNESIUM
     Dosage: 160 MILLIGRAM, QD (40 MG 2-1-1)
     Dates: start: 202404
  33. LEVOTHYROXINE SODIUM [Concomitant]
     Active Substance: LEVOTHYROXINE SODIUM
  34. LEVOTHYROXINE SODIUM [Concomitant]
     Active Substance: LEVOTHYROXINE SODIUM
     Route: 048
  35. LEVOTHYROXINE SODIUM [Concomitant]
     Active Substance: LEVOTHYROXINE SODIUM
     Route: 048
  36. LEVOTHYROXINE SODIUM [Concomitant]
     Active Substance: LEVOTHYROXINE SODIUM
  37. TRIMETHOPRIM [Concomitant]
     Active Substance: TRIMETHOPRIM
  38. TRIMETHOPRIM [Concomitant]
     Active Substance: TRIMETHOPRIM
     Route: 048
  39. TRIMETHOPRIM [Concomitant]
     Active Substance: TRIMETHOPRIM
     Route: 048
  40. TRIMETHOPRIM [Concomitant]
     Active Substance: TRIMETHOPRIM
  41. SULFAMETHOXAZOLE\TRIMETHOPRIM [Concomitant]
     Active Substance: SULFAMETHOXAZOLE\TRIMETHOPRIM
  42. SULFAMETHOXAZOLE\TRIMETHOPRIM [Concomitant]
     Active Substance: SULFAMETHOXAZOLE\TRIMETHOPRIM
     Route: 048
  43. SULFAMETHOXAZOLE\TRIMETHOPRIM [Concomitant]
     Active Substance: SULFAMETHOXAZOLE\TRIMETHOPRIM
     Route: 048
  44. SULFAMETHOXAZOLE\TRIMETHOPRIM [Concomitant]
     Active Substance: SULFAMETHOXAZOLE\TRIMETHOPRIM
  45. PREDNISOLONE [Concomitant]
     Active Substance: PREDNISOLONE
  46. PREDNISOLONE [Concomitant]
     Active Substance: PREDNISOLONE
     Route: 048
  47. PREDNISOLONE [Concomitant]
     Active Substance: PREDNISOLONE
     Route: 048
  48. PREDNISOLONE [Concomitant]
     Active Substance: PREDNISOLONE

REACTIONS (4)
  - Agranulocytosis [Recovering/Resolving]
  - Swelling face [Recovering/Resolving]
  - Odynophagia [Recovering/Resolving]
  - Pyrexia [Recovering/Resolving]

NARRATIVE: CASE EVENT DATE: 20240716
